FAERS Safety Report 10009408 (Version 1)
Quarter: 2014Q1

REPORT INFORMATION
  Report Type: Spontaneous
  Country: US (occurrence: US)
  Receive Date: 20140313
  Receipt Date: 20140313
  Transmission Date: 20141002
  Serious: No
  Sender: FDA-Public Use
  Company Number: US-INCYTE CORPORATION-2012IN001533

PATIENT
  Age: 67 Year
  Sex: Female

DRUGS (11)
  1. JAKAFI [Suspect]
     Indication: MYELOFIBROSIS
     Dosage: 15 MG, BID
     Route: 048
     Dates: start: 20111223, end: 2012
  2. JAKAFI [Suspect]
     Dosage: 15 MG, BID ALTERNATING WITH 15 MG QD
     Route: 048
     Dates: start: 2012
  3. CELEXA [Concomitant]
     Dosage: 20 MG, QD
  4. GABAPENTIN [Concomitant]
     Dosage: 600 MG, QD
  5. LEVOXYL [Concomitant]
     Dosage: 0.125 MG, QD
  6. ALLOPURINOL [Concomitant]
     Dosage: 300 MG, QD
  7. TOPROL XL [Concomitant]
     Dosage: 100 MG, QD
  8. EXFORGE [Concomitant]
     Dosage: 160-12.5 MG, QD
  9. PROTONIX [Concomitant]
     Dosage: 20 MG, QD
  10. CALCIUM WITH VITAMIN D [Concomitant]
  11. MAGNESIUM [Concomitant]
     Indication: SUPPLEMENTATION THERAPY

REACTIONS (2)
  - Diarrhoea [Not Recovered/Not Resolved]
  - Haemoglobin decreased [Unknown]
